FAERS Safety Report 6756822-5 (Version None)
Quarter: 2010Q2

REPORT INFORMATION
  Report Type: 
  Country: None (occurrence: None)
  Receive Date: 20100524
  Receipt Date: 20100201
  Transmission Date: 20101027
  Serious: No
  Sender: FDA-Public Use
  Company Number: 006039

PATIENT
  Sex: Female

DRUGS (1)
  1. CIMZIA [Suspect]
     Dosage: (200 MG X/MONTH SUBCUTANEOUS)
     Route: 058

REACTIONS (2)
  - FUNGAL INFECTION [None]
  - INCORRECT DOSE ADMINISTERED [None]
